FAERS Safety Report 16816556 (Version 1)
Quarter: 2019Q4

REPORT INFORMATION
  Report Type: Spontaneous
  Country: US (occurrence: US)
  Receive Date: 20190917
  Receipt Date: 20190917
  Transmission Date: 20200122
  Serious: Yes (Life-Threatening, Hospitalization, Disabling)
  Sender: FDA-Public Use
  Company Number: None

PATIENT
  Age: 86 Year
  Sex: Female
  Weight: 51.75 kg

DRUGS (9)
  1. LOSARTIN [Concomitant]
     Active Substance: LOSARTAN
  2. DILTIAZEM. [Concomitant]
     Active Substance: DILTIAZEM
  3. CALCIUM [Concomitant]
     Active Substance: CALCIUM
  4. PROLIA [Suspect]
     Active Substance: DENOSUMAB
     Indication: OSTEOPOROSIS
     Dosage: ?          QUANTITY:3 INJECTION(S);OTHER FREQUENCY:EVERY 6 MONTHS;?
     Route: 058
     Dates: start: 20170926, end: 20181001
  5. MAGNESIUM [Concomitant]
     Active Substance: MAGNESIUM
  6. ZINC. [Concomitant]
     Active Substance: ZINC
  7. VITAMIN B12 [Concomitant]
     Active Substance: CYANOCOBALAMIN
  8. ELIQUIS [Concomitant]
     Active Substance: APIXABAN
  9. VITAMIN D [Concomitant]
     Active Substance: VITAMIN D NOS

REACTIONS (18)
  - Fatigue [None]
  - Dysphonia [None]
  - Nausea [None]
  - Vomiting [None]
  - Pain in extremity [None]
  - Atrial fibrillation [None]
  - Hypoaesthesia [None]
  - Increased upper airway secretion [None]
  - Asthenia [None]
  - Dizziness [None]
  - Hypertension [None]
  - Dysphagia [None]
  - Syncope [None]
  - Dyspnoea [None]
  - Loss of personal independence in daily activities [None]
  - Headache [None]
  - Pollakiuria [None]
  - Rash pustular [None]

NARRATIVE: CASE EVENT DATE: 20170926
